FAERS Safety Report 17639674 (Version 2)
Quarter: 2020Q2

REPORT INFORMATION
  Report Type: Spontaneous
  Country: US (occurrence: US)
  Receive Date: 20200407
  Receipt Date: 20200420
  Transmission Date: 20200713
  Serious: Yes (Hospitalization, Other)
  Sender: FDA-Public Use
  Company Number: US-GILEAD-2020-0458031

PATIENT
  Sex: Female

DRUGS (3)
  1. VEMLIDY [Suspect]
     Active Substance: TENOFOVIR ALAFENAMIDE FUMARATE
     Indication: PRODUCT USED FOR UNKNOWN INDICATION
     Dosage: UNK
     Route: 065
     Dates: start: 20200326
  2. GABAPENTIN. [Suspect]
     Active Substance: GABAPENTIN
     Indication: PAIN
     Route: 065
  3. OXYCODONE [Suspect]
     Active Substance: OXYCODONE
     Indication: PAIN
     Route: 065

REACTIONS (7)
  - Taste disorder [Not Recovered/Not Resolved]
  - Influenza like illness [Recovering/Resolving]
  - Dyspepsia [Recovering/Resolving]
  - Decreased appetite [Not Recovered/Not Resolved]
  - Gallbladder disorder [Not Recovered/Not Resolved]
  - Ulcer [Not Recovered/Not Resolved]
  - Sneezing [Recovering/Resolving]

NARRATIVE: CASE EVENT DATE: 20200331
